FAERS Safety Report 7209592-0 (Version None)
Quarter: 2011Q1

REPORT INFORMATION
  Report Type: 
  Country: None (occurrence: None)
  Receive Date: 20110104
  Receipt Date: 20101227
  Transmission Date: 20110831
  Serious: Yes (Other)
  Sender: FDA-Public Use
  Company Number: NL-PFIZER INC-2010126448

PATIENT
  Age: 93 Year
  Sex: Female

DRUGS (4)
  1. MONO-CEDOCARD [Concomitant]
  2. LYRICA [Suspect]
     Indication: NEURALGIA
     Dosage: 75 MG, ALTERNATE DAY
     Dates: end: 20100901
  3. TEMAZEPAM [Concomitant]
     Indication: NERVOUSNESS
  4. PANTOPRAZOLE [Concomitant]
     Dosage: UNK

REACTIONS (4)
  - DRUG WITHDRAWAL SYNDROME [None]
  - DYSPNOEA [None]
  - HEADACHE [None]
  - VISUAL IMPAIRMENT [None]
